FAERS Safety Report 10266230 (Version 2)
Quarter: 2014Q3

REPORT INFORMATION
  Report Type: Other
  Country: IT (occurrence: IT)
  Receive Date: 20140627
  Receipt Date: 20140702
  Transmission Date: 20150326
  Serious: Yes (Hospitalization)
  Sender: FDA-Public Use
  Company Number: IT-VERTEX PHARMACEUTICALS (CANADA)-2014-002905

PATIENT
  Age: 75 Year
  Sex: Female
  Weight: 69 kg

DRUGS (6)
  1. PEGASYS [Interacting]
     Active Substance: PEGINTERFERON ALFA-2A
     Dosage: UNK
     Route: 065
  2. INCIVO [Suspect]
     Active Substance: TELAPREVIR
     Dosage: UNK
     Route: 048
  3. COPEGUS [Interacting]
     Active Substance: RIBAVIRIN
     Indication: HEPATIC CIRRHOSIS
     Dosage: 600 MG, QD
     Route: 048
     Dates: start: 20140210, end: 20140325
  4. COPEGUS [Interacting]
     Active Substance: RIBAVIRIN
     Dosage: UNK
     Route: 048
  5. PEGASYS [Interacting]
     Active Substance: PEGINTERFERON ALFA-2A
     Indication: HEPATIC CIRRHOSIS
     Dosage: 50 ?G, UNK
     Route: 065
     Dates: start: 20140210, end: 20140325
  6. INCIVO [Suspect]
     Active Substance: TELAPREVIR
     Indication: HEPATIC CIRRHOSIS
     Dosage: 2250 MG, QD
     Route: 048
     Dates: start: 20140210, end: 20140325

REACTIONS (2)
  - Drug interaction [Recovering/Resolving]
  - Anaemia [Recovering/Resolving]

NARRATIVE: CASE EVENT DATE: 20140325
